FAERS Safety Report 6255694-5 (Version None)
Quarter: 2009Q3

REPORT INFORMATION
  Report Type: 
  Country: None (occurrence: None)
  Receive Date: 20090701
  Receipt Date: 20090622
  Transmission Date: 20100115
  Serious: Yes (Congenital Anomaly)
  Sender: FDA-Public Use
  Company Number: GXKR2009SI07253

PATIENT

DRUGS (3)
  1. IRBESARTAN [Suspect]
     Dosage: 150 MG, BID (MATERNAL DOSE), TRANSPLACENTAL
     Route: 064
  2. METHYLDOPA [Suspect]
     Dosage: 250 MG. TID (MATERNAL DOSE), TRANSPLACENTAL
     Route: 064
  3. ACETYLSALICYLATE LYSINE (ACETYLSALICYLATE LYSINE) [Suspect]
     Dosage: 100 MG/D (MATERNAL DOSE)

REACTIONS (2)
  - MATERNAL DRUGS AFFECTING FOETUS [None]
  - POLYDACTYLY [None]
